FAERS Safety Report 19957848 (Version 2)
Quarter: 2021Q4

REPORT INFORMATION
  Report Type: Report from Study
  Country: US (occurrence: US)
  Receive Date: 20211015
  Receipt Date: 20211015
  Transmission Date: 20220303
  Serious: Yes (Hospitalization)
  Sender: FDA-Public Use
  Company Number: US-BIOGEN-2021BI01056444

PATIENT
  Sex: Female

DRUGS (1)
  1. VUMERITY [Suspect]
     Active Substance: DIROXIMEL FUMARATE
     Indication: Multiple sclerosis
     Dosage: STARTED ON THE LOWER DOSE OF 1 PILL A DAY AS PRESCRIBED BY HCP?LONGER TIME PERIODS BEFORE MOVING ...
     Route: 065
     Dates: start: 20210713

REACTIONS (7)
  - Colitis [Unknown]
  - Appendicitis [Unknown]
  - Abdominal abscess [Unknown]
  - Gastric disorder [Unknown]
  - COVID-19 [Recovered/Resolved]
  - Prescribed underdose [Unknown]
  - Underdose [Unknown]
